FAERS Safety Report 17908227 (Version 1)
Quarter: 2020Q2

REPORT INFORMATION
  Report Type: Other
  Country: CA (occurrence: CA)
  Receive Date: 20200617
  Receipt Date: 20200617
  Transmission Date: 20200714
  Serious: Yes (Other)
  Sender: FDA-Public Use
  Company Number: CA-BECTON DICKINSON-2020BDN00166

PATIENT
  Age: 42 Year
  Sex: Female
  Weight: 81 kg

DRUGS (21)
  1. HYDROXYCHLOROQUINE [Concomitant]
     Active Substance: HYDROXYCHLOROQUINE
  2. PANTOPRAZOLE SODIUM ANHYDROUS [Concomitant]
     Active Substance: PANTOPRAZOLE SODIUM ANHYDROUS
  3. CHLORHEXIDINE [Suspect]
     Active Substance: CHLORHEXIDINE
  4. ORENCIA [Suspect]
     Active Substance: ABATACEPT
  5. VENTOLIN [Concomitant]
     Active Substance: ALBUTEROL SULFATE
  6. ACETAMINOPHEN. [Suspect]
     Active Substance: ACETAMINOPHEN
  7. ARAVA [Suspect]
     Active Substance: LEFLUNOMIDE
  8. D-ALPHA TOCOPHEROL [Concomitant]
     Active Substance: .ALPHA.-TOCOPHEROL, D-
  9. IBUPROFEN. [Concomitant]
     Active Substance: IBUPROFEN
  10. TYLENOL [Concomitant]
     Active Substance: ACETAMINOPHEN
  11. CIMZIA [Suspect]
     Active Substance: CERTOLIZUMAB PEGOL
     Dosage: 400 MG
     Route: 058
  12. OXYCODONE TEREPHTHALATE [Suspect]
     Active Substance: OXYCODONE TEREPHTHALATE
  13. OMEGA-3 ACIDS [Concomitant]
     Active Substance: OMEGA-3 FATTY ACIDS
  14. ACTEMRA [Suspect]
     Active Substance: TOCILIZUMAB
  15. OXYCODONE [Suspect]
     Active Substance: OXYCODONE
  16. ZOPICLONE [Concomitant]
     Active Substance: ZOPICLONE
  17. ENBREL [Suspect]
     Active Substance: ETANERCEPT
     Route: 058
  18. SIMPONI [Suspect]
     Active Substance: GOLIMUMAB
     Route: 058
  19. METHOTREXATE. [Suspect]
     Active Substance: METHOTREXATE
  20. CETIRIZINE [Concomitant]
     Active Substance: CETIRIZINE HYDROCHLORIDE
  21. PREDNISONE. [Concomitant]
     Active Substance: PREDNISONE

REACTIONS (20)
  - Back pain [Unknown]
  - Muscle spasticity [Unknown]
  - Respiratory disorder [Unknown]
  - Sinusitis [Unknown]
  - Diarrhoea [Unknown]
  - Asthenia [Unknown]
  - Body temperature increased [Unknown]
  - Joint swelling [Unknown]
  - Lower respiratory tract infection [Unknown]
  - Pain [Unknown]
  - Rash [Unknown]
  - Ear pain [Unknown]
  - Peripheral swelling [Unknown]
  - Abdominal pain upper [Unknown]
  - Urticaria [Unknown]
  - Insomnia [Unknown]
  - Vomiting [Unknown]
  - Headache [Unknown]
  - Night sweats [Unknown]
  - Pruritus [Unknown]
